FAERS Safety Report 6686853-5 (Version None)
Quarter: 2010Q2

REPORT INFORMATION
  Report Type: 
  Country: None (occurrence: None)
  Receive Date: 20100419
  Receipt Date: 20100414
  Transmission Date: 20101027
  Serious: Yes (Hospitalization, Other)
  Sender: FDA-Public Use
  Company Number: IT-BRISTOL-MYERS SQUIBB COMPANY-15063456

PATIENT
  Age: 82 Year
  Sex: Female

DRUGS (7)
  1. COUMADIN [Suspect]
     Indication: ATRIAL FIBRILLATION
     Dosage: 1 POSOLOGIC UNIT PER DAY; INTERRUPTED ON 12APR2010
     Route: 048
     Dates: start: 20091224
  2. ASPIRIN [Suspect]
     Dosage: 1 DF=POSOLOGIC UNIT
     Route: 048
     Dates: start: 20091223
  3. PAROXETINE HCL [Concomitant]
     Dosage: 1 DF=POSOLOGIC UNIT
     Route: 048
     Dates: start: 20091223
  4. ESOPRAL [Concomitant]
     Dosage: 1 DF=POSOLOGIC UNIT
  5. CORDARONE [Concomitant]
     Dosage: 1 POSOLOGIC UNIT
  6. TAPAZOLE [Concomitant]
     Dosage: 1 DF=POSOLOGIC UNIT
     Route: 048
  7. SUPRADYN [Concomitant]

REACTIONS (3)
  - INTERNATIONAL NORMALISED RATIO INCREASED [None]
  - MEDICATION ERROR [None]
  - PROTHROMBIN TIME PROLONGED [None]
